FAERS Safety Report 7743955-X (Version None)
Quarter: 2011Q3

REPORT INFORMATION
  Report Type: 
  Country: None (occurrence: None)
  Receive Date: 20110912
  Receipt Date: 20110905
  Transmission Date: 20111222
  Serious: Yes (Other)
  Sender: FDA-Public Use
  Company Number: GR-GLAXOSMITHKLINE-B0745568A

PATIENT
  Age: 21 Year
  Sex: Female

DRUGS (3)
  1. ZANTAC [Suspect]
     Dosage: .5AMP PER DAY
     Route: 042
     Dates: start: 20110311
  2. PRIMPERAN TAB [Suspect]
     Indication: NAUSEA
     Route: 048
     Dates: start: 20100101, end: 20110311
  3. ZANTAC [Suspect]
     Indication: NAUSEA
     Route: 048
     Dates: start: 20100101, end: 20110311

REACTIONS (2)
  - ANGIOEDEMA [None]
  - TONGUE OEDEMA [None]
